FAERS Safety Report 5326332-0 (Version None)
Quarter: 2007Q2

REPORT INFORMATION
  Report Type: 
  Country: None (occurrence: None)
  Receive Date: 20070516
  Receipt Date: 20070511
  Transmission Date: 20071010
  Serious: Yes (Other)
  Sender: FDA-Public Use
  Company Number: A0641163A

PATIENT
  Age: 72 Year
  Sex: Male
  Weight: 115.9 kg

DRUGS (5)
  1. AVANDIA [Suspect]
     Indication: DIABETES MELLITUS NON-INSULIN-DEPENDENT
     Dosage: 8MG PER DAY
     Route: 048
     Dates: start: 20020101
  2. METFORMIN [Concomitant]
     Dosage: 1000MG PER DAY
     Route: 048
     Dates: start: 20010101
  3. GLYBURIDE [Concomitant]
     Dosage: 10MG TWICE PER DAY
     Route: 048
     Dates: start: 20010101
  4. LIPITOR [Concomitant]
     Dosage: 20MG PER DAY
     Dates: start: 20040101
  5. DIOVAN [Concomitant]
     Dosage: 80MG PER DAY
     Dates: start: 20060101

REACTIONS (5)
  - NORMAL TENSION GLAUCOMA [None]
  - OPTIC ATROPHY [None]
  - OPTIC NERVE CUPPING [None]
  - VISUAL ACUITY REDUCED [None]
  - VISUAL FIELD DEFECT [None]
